FAERS Safety Report 25138850 (Version 1)
Quarter: 2025Q1

REPORT INFORMATION
  Report Type: Spontaneous
  Country: US (occurrence: US)
  Receive Date: 20250331
  Receipt Date: 20250331
  Transmission Date: 20250409
  Serious: Yes (Other)
  Sender: ALKEM
  Company Number: US-ALKEM LABORATORIES LIMITED-US-ALKEM-2024-23471

PATIENT
  Age: 54 Year
  Sex: Female

DRUGS (3)
  1. CHLORTHALIDONE [Suspect]
     Active Substance: CHLORTHALIDONE
     Indication: Diuretic therapy
     Route: 065
  2. CHLORTHALIDONE [Suspect]
     Active Substance: CHLORTHALIDONE
     Indication: Hypertension
     Dosage: 12.5 MILLIGRAM, QD
     Route: 065
  3. CHLORTHALIDONE [Suspect]
     Active Substance: CHLORTHALIDONE
     Indication: Nephrolithiasis
     Dosage: 12.5 MILLIGRAM, QD
     Route: 065

REACTIONS (2)
  - Pancreatitis acute [Unknown]
  - Idiopathic pancreatitis [Unknown]
